FAERS Safety Report 25681010 (Version 1)
Quarter: 2025Q3

REPORT INFORMATION
  Report Type: Spontaneous
  Country: KR (occurrence: KR)
  Receive Date: 20250814
  Receipt Date: 20250814
  Transmission Date: 20251021
  Serious: Yes (Other)
  Sender: STRIDES
  Company Number: KR-STRIDES ARCOLAB LIMITED-2025SP010199

PATIENT

DRUGS (3)
  1. PREDNISOLONE [Suspect]
     Active Substance: PREDNISOLONE
     Indication: Neurocysticercosis
     Route: 065
  2. LEVETIRACETAM [Suspect]
     Active Substance: LEVETIRACETAM
     Indication: Neurocysticercosis
     Route: 065
  3. PRAZIQUANTEL [Suspect]
     Active Substance: PRAZIQUANTEL
     Indication: Neurocysticercosis
     Route: 065

REACTIONS (2)
  - Symptom recurrence [Unknown]
  - Off label use [Unknown]
